FAERS Safety Report 18637625 (Version 1)
Quarter: 2020Q4

REPORT INFORMATION
  Report Type: Spontaneous
  Country: PL (occurrence: PL)
  Receive Date: 20201218
  Receipt Date: 20201218
  Transmission Date: 20210114
  Serious: Yes (Death, Other)
  Sender: FDA-Public Use
  Company Number: PL-GILEAD-2020-0509479

PATIENT
  Age: 73 Year
  Sex: Male

DRUGS (11)
  1. VEKLURY [Suspect]
     Active Substance: REMDESIVIR
     Dosage: 100 MG
     Route: 042
     Dates: start: 20200918, end: 20200927
  2. INSULIN [Concomitant]
     Active Substance: INSULIN NOS
     Indication: TYPE 2 DIABETES MELLITUS
  3. NEOPARIN [Concomitant]
     Active Substance: ENOXAPARIN SODIUM
     Dosage: 0.8 ML DAY 8
     Route: 058
  4. FRESH FROZEN PLASMA [Concomitant]
     Active Substance: HUMAN PLASMA
     Dosage: 235 ML
     Route: 042
  5. NEOPARIN [Concomitant]
     Active Substance: ENOXAPARIN SODIUM
     Dosage: 0.4 ML DAY 4
     Route: 058
  6. BIOTRAKSON [Concomitant]
     Active Substance: CEFTRIAXONE SODIUM
     Dosage: 2 G, QD
     Route: 042
  7. PERINDOPRIL [Concomitant]
     Active Substance: PERINDOPRIL
     Indication: HYPERTENSION
  8. TOCILIZUMAB. [Concomitant]
     Active Substance: TOCILIZUMAB
     Dosage: 800 UNK DAY 6
     Route: 042
  9. VEKLURY [Suspect]
     Active Substance: REMDESIVIR
     Indication: COVID-19 PNEUMONIA
     Dosage: 200 MG DAY 1
     Route: 042
     Dates: start: 20200917
  10. OXYGEN. [Concomitant]
     Active Substance: OXYGEN
  11. MEROPENEM. [Concomitant]
     Active Substance: MEROPENEM
     Dosage: 1 G X3
     Route: 042

REACTIONS (2)
  - Alanine aminotransferase increased [Unknown]
  - Sudden death [Fatal]

NARRATIVE: CASE EVENT DATE: 20200922
